FAERS Safety Report 12528274 (Version 4)
Quarter: 2016Q3

REPORT INFORMATION
  Report Type: Spontaneous
  Country: US (occurrence: US)
  Receive Date: 20160705
  Receipt Date: 20160808
  Transmission Date: 20161109
  Serious: No
  Sender: FDA-Public Use
  Company Number: US-BEH-2016058755

PATIENT
  Sex: Female
  Weight: 54 kg

DRUGS (19)
  1. DIPHENHYDRAMINE. [Concomitant]
     Active Substance: DIPHENHYDRAMINE
  2. ALBUTEROL. [Concomitant]
     Active Substance: ALBUTEROL
  3. GAS-X [Concomitant]
     Active Substance: DIMETHICONE
  4. RITALIN [Concomitant]
     Active Substance: METHYLPHENIDATE HYDROCHLORIDE
  5. SINGULAIR [Concomitant]
     Active Substance: MONTELUKAST SODIUM
  6. ACETAMINOPHEN. [Concomitant]
     Active Substance: ACETAMINOPHEN
  7. FLOVENT HFA [Concomitant]
     Active Substance: FLUTICASONE PROPIONATE
  8. LIDOCAINE/PRILOCAINE [Concomitant]
     Active Substance: LIDOCAINE\PRILOCAINE
  9. VITAMIN B12 [Concomitant]
     Active Substance: CYANOCOBALAMIN
  10. HIZENTRA [Suspect]
     Active Substance: HUMAN IMMUNOGLOBULIN G
     Indication: IMMUNODEFICIENCY COMMON VARIABLE
     Route: 058
  11. EYE DROPS [Concomitant]
     Active Substance: TETRAHYDROZOLINE HYDROCHLORIDE
  12. CHLOR-TRIMETON ALLERGY RELIEF [Concomitant]
  13. MULTIVITAMINS [Concomitant]
     Active Substance: VITAMINS
  14. VITAMIN C [Concomitant]
     Active Substance: ASCORBIC ACID
  15. EPIPEN [Concomitant]
     Active Substance: EPINEPHRINE
  16. TUMS [Concomitant]
     Active Substance: CALCIUM CARBONATE
  17. BACTROBAN [Concomitant]
     Active Substance: MUPIROCIN\MUPIROCIN CALCIUM
  18. ZANTAC [Concomitant]
     Active Substance: RANITIDINE HYDROCHLORIDE
  19. CELEXA [Concomitant]
     Active Substance: CITALOPRAM HYDROBROMIDE

REACTIONS (4)
  - Pain [Unknown]
  - Nausea [Unknown]
  - Fatigue [Unknown]
  - Feeling abnormal [Unknown]
